FAERS Safety Report 15572412 (Version 1)
Quarter: 2018Q4

REPORT INFORMATION
  Report Type: Report from Study
  Country: US (occurrence: US)
  Receive Date: 20181031
  Receipt Date: 20181031
  Transmission Date: 20190205
  Serious: Yes (Other)
  Sender: FDA-Public Use
  Company Number: US-ELI_LILLY_AND_COMPANY-US201810015040

PATIENT

DRUGS (1)
  1. PEMETREXED. [Suspect]
     Active Substance: PEMETREXED
     Indication: NON-SMALL CELL LUNG CANCER
     Dosage: 500 MG/M2, UNKNOWN
     Route: 065

REACTIONS (5)
  - Renal disorder [Unknown]
  - Blood creatinine increased [Unknown]
  - Colitis [Unknown]
  - Rash [Unknown]
  - Pyelonephritis acute [Unknown]
